FAERS Safety Report 5266918-5 (Version None)
Quarter: 2007Q1

REPORT INFORMATION
  Report Type: 
  Country: None (occurrence: None)
  Receive Date: 20070316
  Receipt Date: 20070308
  Transmission Date: 20070707
  Serious: Yes (Other)
  Sender: FDA-Public Use
  Company Number: 2007AP01492

PATIENT
  Age: 54 Year
  Sex: Male

DRUGS (6)
  1. OMEPRAL [Suspect]
     Indication: UPPER GASTROINTESTINAL HAEMORRHAGE
     Route: 048
  2. OMEPRAL [Suspect]
     Route: 042
  3. LIPITOR [Concomitant]
     Route: 048
  4. DICANON [Concomitant]
     Route: 048
  5. FRANDOL S [Concomitant]
  6. TICLOPIDINE HCL [Concomitant]
     Route: 048

REACTIONS (1)
  - ELECTROCARDIOGRAM QT PROLONGED [None]
